FAERS Safety Report 8921822 (Version 2)
Quarter: 2012Q4

REPORT INFORMATION
  Report Type: 
  Country: US (occurrence: US)
  Receive Date: 20121122
  Receipt Date: 20121130
  Transmission Date: 20130627
  Serious: No
  Sender: FDA-Public Use
  Company Number: US-009507513-1211USA007233

PATIENT

DRUGS (3)
  1. REBETOL [Suspect]
     Dosage: UNK
  2. VICTRELIS [Suspect]
     Dosage: UNK
     Dates: start: 20121015
  3. INTERFERON ALFA [Suspect]

REACTIONS (1)
  - Drug ineffective [Not Recovered/Not Resolved]
